FAERS Safety Report 16152444 (Version 1)
Quarter: 2019Q2

REPORT INFORMATION
  Report Type: Spontaneous
  Country: DE (occurrence: DE)
  Receive Date: 20190403
  Receipt Date: 20190403
  Transmission Date: 20190711
  Serious: Yes (Congenital Anomaly)
  Sender: FDA-Public Use
  Company Number: DE-ACCORD-118170

PATIENT
  Age: 1 Day
  Sex: Female
  Weight: 2.4 kg

DRUGS (3)
  1. ESCITALOPRAM [Suspect]
     Active Substance: ESCITALOPRAM OXALATE
     Indication: DEPRESSION
     Dosage: 10 MG/D (5)
     Route: 064
     Dates: start: 20170806, end: 20170915
  2. SKINOREN [Concomitant]
     Active Substance: AZELAIC ACID
     Indication: ACNE
     Route: 064
  3. FOLIC ACID. [Concomitant]
     Active Substance: FOLIC ACID
     Indication: PROPHYLAXIS OF NEURAL TUBE DEFECT
     Route: 064
     Dates: start: 20170907, end: 20170913

REACTIONS (3)
  - Atrial septal defect [Not Recovered/Not Resolved]
  - Transposition of the great vessels [Not Recovered/Not Resolved]
  - Foetal exposure during pregnancy [Unknown]

NARRATIVE: CASE EVENT DATE: 20180416
